FAERS Safety Report 8164604-5 (Version None)
Quarter: 2012Q1

REPORT INFORMATION
  Report Type: 
  Country: None (occurrence: None)
  Receive Date: 20120227
  Receipt Date: 20120216
  Transmission Date: 20120608
  Serious: Yes (Hospitalization)
  Sender: FDA-Public Use
  Company Number: PH-AMGEN-PHLSP2012010983

PATIENT
  Age: 35 Year
  Sex: Female

DRUGS (3)
  1. PREDNISONE [Concomitant]
     Dosage: UNK
  2. NAPROXEN [Concomitant]
     Dosage: UNK
  3. ENBREL [Suspect]
     Indication: PRODUCT USED FOR UNKNOWN INDICATION
     Dosage: UNK

REACTIONS (5)
  - SEPSIS [None]
  - TUBERCULOSIS [None]
  - ARTHRITIS [None]
  - TUBERCULOMA OF CENTRAL NERVOUS SYSTEM [None]
  - PYREXIA [None]
